FAERS Safety Report 8474550 (Version 6)
Quarter: 2013Q3

REPORT INFORMATION
  Report Type: Report from Study
  Country: DK (occurrence: DK)
  Receive Date: 20120323
  Receipt Date: 20130814
  Transmission Date: 20140515
  Serious: Yes (Hospitalization)
  Sender: FDA-Public Use
  Company Number: DK-ROCHE-1046761

PATIENT
  Age: 65 Year
  Sex: Female
  Weight: 74 kg

DRUGS (29)
  1. RITUXIMAB [Suspect]
     Indication: DIFFUSE LARGE B-CELL LYMPHOMA
     Route: 042
     Dates: start: 20120207
  2. RITUXIMAB [Suspect]
     Route: 042
     Dates: start: 20120213
  3. RITUXIMAB [Suspect]
     Dosage: DATE OF LAST DOSE PRIOR TO SAE: 13/FEB/2012
     Route: 042
     Dates: start: 20120305
  4. RITUXIMAB [Suspect]
     Dosage: DATE OF LAST DOSE PRIOR TO SAE: 17/MAY/2012
     Route: 042
     Dates: start: 20120514
  5. CYCLOPHOSPHAMIDE [Suspect]
     Indication: DIFFUSE LARGE B-CELL LYMPHOMA
     Route: 042
     Dates: start: 20120207
  6. CYCLOPHOSPHAMIDE [Suspect]
     Dosage: DATE OF LAST DOSES PRIOR TO SAE: 05/MAR/2012
     Route: 042
     Dates: start: 20120305
  7. CYCLOPHOSPHAMIDE [Suspect]
     Dosage: DATE OF LAST DOSES PRIOR TO SAE: 17/MAY/2012
     Route: 042
     Dates: start: 20120514
  8. DOXORUBICIN [Suspect]
     Indication: DIFFUSE LARGE B-CELL LYMPHOMA
     Route: 042
     Dates: start: 20120207
  9. DOXORUBICIN [Suspect]
     Route: 042
     Dates: start: 20120305
  10. DOXORUBICIN [Suspect]
     Dosage: DATE OF LAST DOSE PRIOR TO SAE: 17/MAY/2012
     Route: 042
     Dates: start: 20120517
  11. VINCRISTIN [Suspect]
     Indication: DIFFUSE LARGE B-CELL LYMPHOMA
     Route: 042
     Dates: start: 20120207
  12. VINCRISTIN [Suspect]
     Route: 042
     Dates: start: 20120305
  13. VINCRISTIN [Suspect]
     Dosage: DATE OF LAST DOSE PRIOR TO SAE: 17/MAY/2013
     Route: 042
     Dates: start: 20120514
  14. PREDNISONE [Suspect]
     Indication: DIFFUSE LARGE B-CELL LYMPHOMA
     Route: 048
     Dates: start: 20120207
  15. PREDNISONE [Suspect]
     Dosage: DATE OF LAST DOSE PRIOR TO SAE : 09/MAR/2012
     Route: 048
     Dates: start: 20120305
  16. PREDNISONE [Suspect]
     Route: 048
     Dates: start: 20120227, end: 20120227
  17. PREDNISONE [Suspect]
     Route: 048
     Dates: start: 20120220, end: 20120224
  18. PREDNISONE [Suspect]
     Dosage: DATE OF LAST DOSE PRIOR TO SAE: 18/MAY/2012
     Route: 048
     Dates: start: 20120517
  19. PEGFILGRASTIM [Suspect]
     Indication: DIFFUSE LARGE B-CELL LYMPHOMA
     Route: 058
     Dates: start: 20120210, end: 20120210
  20. PEGFILGRASTIM [Suspect]
     Route: 058
     Dates: start: 20120223
  21. PEGFILGRASTIM [Suspect]
     Route: 058
     Dates: start: 20120308
  22. PEGFILGRASTIM [Suspect]
     Dosage: DATE OF LAST DOSE PRIOR TO SAE: 18/MAY/2012
     Route: 058
     Dates: start: 20120517
  23. LANSOPRAZOLE [Concomitant]
     Route: 048
     Dates: start: 20120113
  24. LANSOPRAZOLE [Concomitant]
     Route: 048
     Dates: start: 20120305
  25. ACICLOVIR [Concomitant]
     Indication: INFECTION
     Route: 048
     Dates: start: 20120207
  26. ACICLOVIR [Concomitant]
     Dosage: DRUG NAME: ACICLODAN
     Route: 048
     Dates: start: 20120220, end: 20120618
  27. BACTRIM [Concomitant]
     Indication: INFECTION
     Dosage: DOSE: 400/80 MG
     Route: 048
     Dates: start: 20120207
  28. ONDANSETRON [Concomitant]
     Indication: NAUSEA
     Route: 048
     Dates: start: 20120207, end: 20120208
  29. DOLOL [Concomitant]
     Indication: BACK PAIN
     Route: 065
     Dates: start: 20120525

REACTIONS (2)
  - Pulmonary embolism [Recovered/Resolved with Sequelae]
  - Back pain [Not Recovered/Not Resolved]
